APPROVED DRUG PRODUCT: PENTAMIDINE ISETHIONATE
Active Ingredient: PENTAMIDINE ISETHIONATE
Strength: 300MG/VIAL
Dosage Form/Route: INJECTABLE;INJECTION
Application: A206982 | Product #001 | TE Code: AP
Applicant: PHARMOBEDIENT CONSULTING LLC
Approved: Mar 17, 2022 | RLD: No | RS: No | Type: RX